FAERS Safety Report 5176803-5 (Version None)
Quarter: 2006Q4

REPORT INFORMATION
  Report Type: 
  Country: None (occurrence: None)
  Receive Date: 20061212
  Receipt Date: 20061212
  Transmission Date: 20070319
  Serious: Yes (Other)
  Sender: FDA-Public Use
  Company Number: None

PATIENT
  Age: 79 Year
  Sex: Male
  Weight: 79.8331 kg

DRUGS (1)
  1. ETODOLAC [Suspect]
     Dosage: 300 MG TID

REACTIONS (1)
  - THROMBOCYTOPENIA [None]
